FAERS Safety Report 8337885-2 (Version None)
Quarter: 2012Q2

REPORT INFORMATION
  Report Type: 
  Country: None (occurrence: None)
  Receive Date: 20120504
  Receipt Date: 20120424
  Transmission Date: 20120825
  Serious: Yes (Hospitalization, Other)
  Sender: FDA-Public Use
  Company Number: US-ELI_LILLY_AND_COMPANY-US201204008641

PATIENT
  Age: 57 Year
  Sex: Female

DRUGS (4)
  1. DEPAKOTE [Concomitant]
  2. FORTEO [Suspect]
     Indication: OSTEOPOROSIS
     Dosage: UNK, QD
     Dates: start: 20120201
  3. TEGRETOL [Concomitant]
  4. EXFORGE [Concomitant]
     Indication: BLOOD PRESSURE

REACTIONS (1)
  - HIP FRACTURE [None]
